FAERS Safety Report 12138790 (Version 2)
Quarter: 2017Q4

REPORT INFORMATION
  Report Type: Spontaneous
  Country: US (occurrence: US)
  Receive Date: 20160302
  Receipt Date: 20171221
  Transmission Date: 20180320
  Serious: Yes (Hospitalization, Other)
  Sender: FDA-Public Use
  Company Number: US-GLAXOSMITHKLINE-US2016GSK030458

PATIENT
  Age: 15 Year
  Sex: Female

DRUGS (1)
  1. BUPROPION. [Suspect]
     Active Substance: BUPROPION
     Indication: DEPRESSION
     Dosage: 90 DF, SINGLE
     Route: 065

REACTIONS (20)
  - Tachycardia [Unknown]
  - Leukocytosis [Unknown]
  - Cardiac output decreased [Recovering/Resolving]
  - Polyuria [Recovered/Resolved]
  - Cardiogenic shock [Recovered/Resolved]
  - Status epilepticus [Recovered/Resolved]
  - Mydriasis [Recovered/Resolved]
  - Cardiomyopathy [Recovered/Resolved]
  - Pulmonary oedema [Recovered/Resolved]
  - Pulmonary haemorrhage [Recovered/Resolved]
  - Pneumonia aspiration [Recovered/Resolved]
  - Cardiac arrest [Recovered/Resolved]
  - Pulseless electrical activity [Unknown]
  - Acute kidney injury [Recovered/Resolved]
  - Intentional overdose [Unknown]
  - Hypoxia [Unknown]
  - Toxicity to various agents [Recovered/Resolved]
  - Bradycardia [Unknown]
  - Pupil fixed [Recovered/Resolved]
  - Blood creatinine abnormal [Recovered/Resolved]
